FAERS Safety Report 4700882-X (Version None)
Quarter: 2005Q2

REPORT INFORMATION
  Report Type: 
  Country: None (occurrence: None)
  Receive Date: 20050628
  Receipt Date: 20050622
  Transmission Date: 20051028
  Serious: Yes (Death)
  Sender: FDA-Public Use
  Company Number: GB-BOEHRINGER INGELHEIM PHARMACEUTICALS, INC.-2005-UK-01138UK

PATIENT
  Age: 91 Year
  Sex: Female
  Weight: 75 kg

DRUGS (8)
  1. MOBIC [Suspect]
     Indication: OSTEOARTHRITIS
     Route: 048
     Dates: start: 20041018
  2. RANITIDINE [Concomitant]
     Indication: GASTRIC DISORDER
     Route: 065
     Dates: start: 20010415
  3. ASPIRIN [Concomitant]
     Indication: CARDIAC DISORDER
     Route: 065
     Dates: start: 20021202
  4. FRUSEMIDE [Concomitant]
     Route: 065
  5. SENNA [Concomitant]
     Route: 065
  6. DOMPERIDONE [Concomitant]
     Route: 065
  7. PARACETAMOL [Concomitant]
     Route: 065
  8. TRAMADOL HCL [Concomitant]
     Route: 065

REACTIONS (2)
  - DUODENAL ULCER HAEMORRHAGE [None]
  - PERFORATED ULCER [None]
